FAERS Safety Report 5155258-0 (Version None)
Quarter: 2006Q4

REPORT INFORMATION
  Report Type: 
  Country: None (occurrence: None)
  Receive Date: 20061121
  Receipt Date: 20061113
  Transmission Date: 20070319
  Serious: Yes (Hospitalization)
  Sender: FDA-Public Use
  Company Number: US-MERCK-0611USA04557

PATIENT
  Age: 39 Year
  Sex: Female

DRUGS (1)
  1. JANUVIA [Suspect]
     Indication: DIABETES MELLITUS INSULIN-DEPENDENT
     Route: 048

REACTIONS (2)
  - DIABETIC KETOACIDOSIS [None]
  - OFF LABEL USE [None]
